FAERS Safety Report 7245674-5 (Version None)
Quarter: 2011Q1

REPORT INFORMATION
  Report Type: 
  Country: None (occurrence: None)
  Receive Date: 20110126
  Receipt Date: 20110112
  Transmission Date: 20110831
  Serious: Yes (Death, Hospitalization)
  Sender: FDA-Public Use
  Company Number: DE-ACTELION-A-US2010-43317

PATIENT

DRUGS (1)
  1. ILOPROST INHALATION ROW [Suspect]
     Indication: PULMONARY ARTERIAL HYPERTENSION
     Dosage: 10
     Route: 055
     Dates: start: 20081029, end: 20101225

REACTIONS (5)
  - RESPIRATORY TRACT INFECTION [None]
  - PULMONARY HYPERTENSION [None]
  - SEPTIC SHOCK [None]
  - HYPOTENSION [None]
  - DYSPNOEA [None]
